FAERS Safety Report 17131306 (Version 1)
Quarter: 2019Q4

REPORT INFORMATION
  Report Type: Report from Study
  Country: BR (occurrence: BR)
  Receive Date: 20191209
  Receipt Date: 20191209
  Transmission Date: 20200122
  Serious: Yes (Other)
  Sender: FDA-Public Use
  Company Number: BR-AMGEN-BRACT2011069620

PATIENT
  Age: 53 Year
  Sex: Female
  Weight: 64 kg

DRUGS (6)
  1. ETANERCEPT [Suspect]
     Active Substance: ETANERCEPT
     Dosage: UNK
     Route: 065
     Dates: end: 2017
  2. ENALAPRIL MALEATE. [Concomitant]
     Active Substance: ENALAPRIL MALEATE
     Indication: HYPERTENSION
     Dosage: UNK
  3. AAS [Concomitant]
     Active Substance: ASPIRIN
     Indication: PERIPHERAL VASCULAR DISORDER
     Dosage: UNK
     Route: 065
  4. ETANERCEPT [Suspect]
     Active Substance: ETANERCEPT
     Indication: ANKYLOSING SPONDYLITIS
     Dosage: 50 MILLIGRAM, QWK
     Route: 058
     Dates: start: 20081201
  5. VASOCARD [Concomitant]
     Active Substance: AMLODIPINE BESYLATE
     Dosage: UNK
  6. VASOGARD [Concomitant]
     Active Substance: CILOSTAZOL
     Indication: PERIPHERAL VASCULAR DISORDER
     Dosage: UNK

REACTIONS (12)
  - Memory impairment [Unknown]
  - Device occlusion [Unknown]
  - Coma [Recovered/Resolved]
  - Injection site pain [Recovering/Resolving]
  - Abscess neck [Unknown]
  - Inflammation [Unknown]
  - Decreased immune responsiveness [Unknown]
  - Lung disorder [Unknown]
  - Emotional disorder [Unknown]
  - Wrong technique in product usage process [Recovered/Resolved]
  - Fall [Unknown]
  - Injury [Unknown]

NARRATIVE: CASE EVENT DATE: 2011
